FAERS Safety Report 5507317-8 (Version None)
Quarter: 2007Q4

REPORT INFORMATION
  Report Type: 
  Country: None (occurrence: None)
  Receive Date: 20071102
  Receipt Date: 20071022
  Transmission Date: 20080405
  Serious: Yes (Death)
  Sender: FDA-Public Use
  Company Number: FABR-12245

PATIENT
  Age: 55 Year
  Sex: Male

DRUGS (1)
  1. FABRAZYME [Suspect]
     Indication: FABRY'S DISEASE
     Dates: start: 20001001, end: 20070101

REACTIONS (1)
  - DEATH [None]
